FAERS Safety Report 5763607-5 (Version None)
Quarter: 2008Q2

REPORT INFORMATION
  Report Type: 
  Country: None (occurrence: None)
  Receive Date: 20080610
  Receipt Date: 20080604
  Transmission Date: 20081010
  Serious: Yes (Death, Hospitalization)
  Sender: FDA-Public Use
  Company Number: PHHY2008JP09884

PATIENT
  Sex: Male

DRUGS (8)
  1. NEORAL [Suspect]
     Indication: PEMPHIGOID
     Dosage: 200 MG/DAY
     Route: 048
     Dates: start: 20051101
  2. PREDONINE [Suspect]
     Indication: PEMPHIGOID
     Dosage: 30 MG/DAY
     Route: 048
     Dates: start: 20050201
  3. PREDONINE [Suspect]
     Dosage: 15 MG/DAY
     Route: 048
     Dates: start: 20051101
  4. PREDONINE [Suspect]
     Dosage: 40 MG/DAY
     Route: 048
  5. PREDONINE [Suspect]
     Dosage: 10 MG/DAY
     Route: 048
  6. WARFARIN SODIUM [Concomitant]
     Dosage: 3 MG/DAY
     Route: 048
  7. LECTISOL [Concomitant]
     Indication: PEMPHIGOID
     Dosage: 50 MG/DAY
     Route: 048
  8. DERMOVATE [Concomitant]
     Indication: PEMPHIGOID
     Route: 061

REACTIONS (2)
  - ACARODERMATITIS [None]
  - SEPTIC SHOCK [None]
